FAERS Safety Report 25172003 (Version 1)
Quarter: 2025Q2

REPORT INFORMATION
  Report Type: Spontaneous
  Country: US (occurrence: US)
  Receive Date: 20250408
  Receipt Date: 20250408
  Transmission Date: 20250717
  Serious: Yes (Death, Other)
  Sender: EPIC PHARM
  Company Number: US-EPICPHARMA-US-2025EPCLIT00399

PATIENT
  Age: 16 Year
  Sex: Male

DRUGS (1)
  1. FLECAINIDE ACETATE [Suspect]
     Active Substance: FLECAINIDE ACETATE
     Indication: Product used for unknown indication
     Route: 048

REACTIONS (8)
  - Hypertrophic cardiomyopathy [Fatal]
  - Cardiac dysfunction [Fatal]
  - Dyspnoea [Fatal]
  - Toxicity to various agents [Fatal]
  - Cardiac failure acute [Fatal]
  - Vomiting [Fatal]
  - Nausea [Fatal]
  - Intentional overdose [Unknown]
